FAERS Safety Report 13257883 (Version 1)
Quarter: 2017Q1

REPORT INFORMATION
  Report Type: Spontaneous
  Country: US (occurrence: US)
  Receive Date: 20170221
  Receipt Date: 20170221
  Transmission Date: 20170428
  Serious: No
  Sender: FDA-Public Use
  Company Number: US-ACTELION-A-US2017-150020

PATIENT
  Age: 71 Year
  Sex: Female

DRUGS (1)
  1. OPSUMIT [Suspect]
     Active Substance: MACITENTAN
     Indication: PULMONARY ARTERIAL HYPERTENSION
     Dosage: 110 MG, QD
     Route: 048
     Dates: start: 20161019

REACTIONS (3)
  - Confusional state [Unknown]
  - Vomiting [Recovering/Resolving]
  - Drug dose omission [Recovered/Resolved]
